FAERS Safety Report 25177241 (Version 1)
Quarter: 2025Q2

REPORT INFORMATION
  Report Type: Report from Study
  Country: US (occurrence: US)
  Receive Date: 20250409
  Receipt Date: 20250409
  Transmission Date: 20250716
  Serious: Yes (Hospitalization, Other)
  Sender: ALEXION PHARMACEUTICALS
  Company Number: US-AstraZeneca-CH-00844154A

PATIENT

DRUGS (1)
  1. ULTOMIRIS [Suspect]
     Active Substance: RAVULIZUMAB-CWVZ
     Indication: Myasthenia gravis

REACTIONS (7)
  - Dehydration [Unknown]
  - Motion sickness [Unknown]
  - Hallucination [Unknown]
  - Haemorrhage intracranial [Unknown]
  - Syncope [Unknown]
  - Fall [Unknown]
  - Muscular weakness [Unknown]
